FAERS Safety Report 17854111 (Version 1)
Quarter: 2020Q2

REPORT INFORMATION
  Report Type: Spontaneous
  Country: US (occurrence: US)
  Receive Date: 20200602
  Receipt Date: 20200602
  Transmission Date: 20200714
  Serious: No
  Sender: FDA-Public Use
  Company Number: None

PATIENT
  Age: 73 Year
  Sex: Male
  Weight: 65 kg

DRUGS (2)
  1. DEXTROSE / HEPARIN (HEPARIN NA 100UNT/MLDEXTROSE5% INJ) [Suspect]
     Active Substance: DEXTROSE\HEPARIN SODIUM
     Indication: VASCULAR OPERATION
     Dates: start: 20200226, end: 20200309
  2. DEXTROSE / HEPARIN (HEPARIN NA 100UNT/MLDEXTROSE5% INJ ) [Suspect]
     Active Substance: DEXTROSE\HEPARIN SODIUM
     Indication: ATRIAL FIBRILLATION

REACTIONS (1)
  - Heparin-induced thrombocytopenia [None]

NARRATIVE: CASE EVENT DATE: 20200309
